FAERS Safety Report 8824062 (Version 2)
Quarter: 2012Q4

REPORT INFORMATION
  Report Type: 
  Country: US (occurrence: US)
  Receive Date: 20121003
  Receipt Date: 20121026
  Transmission Date: 20130627
  Serious: Yes (Other)
  Sender: FDA-Public Use
  Company Number: US-BRISTOL-MYERS SQUIBB COMPANY-16995532

PATIENT
  Age: 35 Year
  Sex: Female

DRUGS (5)
  1. ABATACEPT SUBQ INJECTION 125MG/ML [Suspect]
     Indication: RHEUMATOID ARTHRITIS
     Dosage: Orencia,1 DF: 3 or 4 inj
     Route: 058
     Dates: start: 20120904, end: 201209
  2. METHOTREXATE [Concomitant]
  3. CEREBREX [Concomitant]
  4. PLAQUENIL [Concomitant]
  5. PREDNISONE [Concomitant]
     Dosage: Low dose

REACTIONS (4)
  - Tachycardia [Unknown]
  - Panic attack [Unknown]
  - Pyrexia [Recovered/Resolved]
  - Pain [Recovered/Resolved]
